FAERS Safety Report 9899937 (Version 1)
Quarter: 2014Q1

REPORT INFORMATION
  Report Type: Spontaneous
  Country: US (occurrence: US)
  Receive Date: 20140214
  Receipt Date: 20140214
  Transmission Date: 20141002
  Serious: No
  Sender: FDA-Public Use
  Company Number: US-VIVUS-2013V1000825

PATIENT
  Sex: Female
  Weight: 122.58 kg

DRUGS (20)
  1. QSYMIA 3.75MG/23MG [Suspect]
     Indication: WEIGHT DECREASED
     Route: 048
     Dates: start: 201306, end: 2013
  2. QSYMIA 3.75MG/23MG [Suspect]
     Route: 048
     Dates: start: 2013
  3. QSYMIA 7.5MG/46MG [Suspect]
     Indication: WEIGHT DECREASED
     Route: 048
     Dates: start: 2013, end: 2013
  4. QSYMIA 7.5MG/46MG [Suspect]
     Route: 048
     Dates: start: 2013
  5. QSYMIA 11.25MG/69MG [Suspect]
     Indication: WEIGHT DECREASED
     Route: 048
     Dates: start: 2013
  6. SYNTHROID [Concomitant]
     Indication: PRODUCT USED FOR UNKNOWN INDICATION
     Route: 048
     Dates: start: 1993
  7. VICTOZA [Concomitant]
     Indication: DIABETES MELLITUS
     Route: 058
     Dates: start: 2010
  8. LANTUS [Concomitant]
     Indication: DIABETES MELLITUS
     Dosage: 10-25 UNITS
     Dates: start: 2008
  9. LASIX [Concomitant]
     Indication: CARDIAC DISORDER
     Route: 048
     Dates: start: 1993
  10. SIMVASTATIN [Concomitant]
     Indication: BLOOD CHOLESTEROL INCREASED
     Route: 048
     Dates: start: 2008
  11. METOPROLOL [Concomitant]
     Indication: HYPERTENSION
     Route: 048
     Dates: start: 2008
  12. ALLOPURINOL [Concomitant]
     Indication: PRODUCT USED FOR UNKNOWN INDICATION
     Route: 048
     Dates: start: 2009
  13. ASPIRIN [Concomitant]
     Indication: PRODUCT USED FOR UNKNOWN INDICATION
     Route: 048
     Dates: start: 2008
  14. DIOVAN [Concomitant]
     Indication: CARDIAC DISORDER
     Route: 048
  15. MULTIVITAMIN [Concomitant]
     Indication: VITAMIN SUPPLEMENTATION
     Route: 048
  16. MULTIVITAMIN [Concomitant]
     Indication: PROPHYLAXIS
  17. OMEGA 3 [Concomitant]
     Indication: VITAMIN SUPPLEMENTATION
     Route: 048
  18. OMEGA 3 [Concomitant]
     Indication: PROPHYLAXIS
  19. CALCIUM CITRATE [Concomitant]
     Indication: VITAMIN SUPPLEMENTATION
     Route: 048
  20. CALCIUM CITRATE [Concomitant]
     Indication: PROPHYLAXIS

REACTIONS (4)
  - Libido decreased [Not Recovered/Not Resolved]
  - Dry mouth [Not Recovered/Not Resolved]
  - Paraesthesia [Not Recovered/Not Resolved]
  - Alopecia [Not Recovered/Not Resolved]
